FAERS Safety Report 13387600 (Version 2)
Quarter: 2017Q2

REPORT INFORMATION
  Report Type: Report from Study
  Country: CO (occurrence: CO)
  Receive Date: 20170330
  Receipt Date: 20170405
  Transmission Date: 20170830
  Serious: Yes (Other)
  Sender: FDA-Public Use
  Company Number: CO-AMGEN-COLSL2017046819

PATIENT
  Age: 54 Year
  Sex: Male

DRUGS (1)
  1. VECTIBIX [Suspect]
     Active Substance: PANITUMUMAB
     Indication: COLORECTAL CANCER METASTATIC
     Dosage: 360 MG, Q2WK
     Route: 042
     Dates: start: 20150406

REACTIONS (3)
  - Liver injury [Not Recovered/Not Resolved]
  - Renal disorder [Unknown]
  - Colorectal cancer metastatic [Not Recovered/Not Resolved]

NARRATIVE: CASE EVENT DATE: 20161228
